FAERS Safety Report 25956037 (Version 1)
Quarter: 2025Q4

REPORT INFORMATION
  Report Type: Spontaneous
  Country: US (occurrence: US)
  Receive Date: 20251024
  Receipt Date: 20251024
  Transmission Date: 20260118
  Serious: No
  Sender: ABBVIE
  Company Number: US-ABBVIE-6505868

PATIENT
  Age: 66 Year

DRUGS (1)
  1. BOTOX [Suspect]
     Active Substance: ONABOTULINUMTOXINA
     Indication: Migraine
     Dosage: TIME INTERVAL: AS NECESSARY
     Route: 065
     Dates: start: 202509, end: 202509

REACTIONS (8)
  - Hot flush [Unknown]
  - Migraine [Not Recovered/Not Resolved]
  - Asthenia [Unknown]
  - Head discomfort [Unknown]
  - Neck pain [Unknown]
  - Visual impairment [Unknown]
  - Eyelid ptosis [Unknown]
  - Lethargy [Unknown]

NARRATIVE: CASE EVENT DATE: 20250901
